FAERS Safety Report 5530654-8 (Version None)
Quarter: 2007Q4

REPORT INFORMATION
  Report Type: 
  Country: None (occurrence: None)
  Receive Date: 20071130
  Receipt Date: 20071123
  Transmission Date: 20080405
  Serious: Yes (Hospitalization)
  Sender: FDA-Public Use
  Company Number: B0497686A

PATIENT
  Age: 61 Year
  Sex: Female
  Weight: 48 kg

DRUGS (2)
  1. HYCAMTIN [Suspect]
     Indication: CERVIX CARCINOMA RECURRENT
     Dosage: 2.79MGM2 WEEKLY
     Route: 042
     Dates: start: 20071031
  2. PACLITAXEL [Suspect]
     Indication: CERVIX CARCINOMA RECURRENT
     Dosage: 111MGM2 WEEKLY
     Route: 042
     Dates: start: 20071031

REACTIONS (1)
  - GENERAL PHYSICAL HEALTH DETERIORATION [None]
